FAERS Safety Report 4399534-8 (Version None)
Quarter: 2004Q3

REPORT INFORMATION
  Report Type: 
  Country: None (occurrence: None)
  Receive Date: 20040716
  Receipt Date: 20040715
  Transmission Date: 20050211
  Serious: Yes (Other)
  Sender: FDA-Public Use
  Company Number: US-GLAXOSMITHKLINE-A0518528A

PATIENT
  Age: 49 Year
  Sex: Male

DRUGS (4)
  1. PAXIL [Suspect]
     Indication: SCHIZOAFFECTIVE DISORDER
     Dosage: 40MG PER DAY
     Route: 048
  2. LORATADINE [Concomitant]
  3. DEXTROMETHORPHAN HYDROBROMIDE [Concomitant]
  4. OLANZAPINE [Concomitant]

REACTIONS (2)
  - AGITATION [None]
  - PSYCHOTIC DISORDER [None]
